FAERS Safety Report 4791125-X (Version None)
Quarter: 2005Q4

REPORT INFORMATION
  Report Type: 
  Country: None (occurrence: None)
  Receive Date: 20051007
  Receipt Date: 20050930
  Transmission Date: 20060501
  Serious: Yes (Other)
  Sender: FDA-Public Use
  Company Number: US-BRISTOL-MYERS SQUIBB COMPANY-13131990

PATIENT
  Age: 41 Year
  Sex: Male

DRUGS (3)
  1. STAVUDINE [Suspect]
     Indication: HIV INFECTION
     Dates: start: 20000201, end: 20030701
  2. EFAVIRENZ [Suspect]
     Indication: HIV INFECTION
     Dates: start: 20020201
  3. TENOFOVIR [Suspect]
     Indication: HIV INFECTION
     Dates: start: 20020201

REACTIONS (6)
  - ABDOMINAL PAIN [None]
  - DIARRHOEA [None]
  - HYPOAESTHESIA [None]
  - NAUSEA [None]
  - PAIN IN EXTREMITY [None]
  - PANCREATITIS [None]
